FAERS Safety Report 6202586-3 (Version None)
Quarter: 2009Q2

REPORT INFORMATION
  Report Type: 
  Country: None (occurrence: None)
  Receive Date: 20090526
  Receipt Date: 20090518
  Transmission Date: 20091009
  Serious: No
  Sender: FDA-Public Use
  Company Number: US-B.I. PHARMACEUTICALS,INC./RIDGEFIELD-2009-BP-06255BP

PATIENT
  Sex: Female

DRUGS (5)
  1. ATROVENT HFA [Suspect]
     Indication: CHRONIC OBSTRUCTIVE PULMONARY DISEASE
     Route: 055
     Dates: start: 20020101
  2. ATROVENT HFA [Suspect]
     Indication: EMPHYSEMA
  3. SPIRIVA [Suspect]
     Indication: CHRONIC OBSTRUCTIVE PULMONARY DISEASE
     Route: 055
     Dates: start: 20090513, end: 20090513
  4. SPIRIVA [Suspect]
     Indication: EMPHYSEMA
  5. ALBUTEROL [Concomitant]
     Route: 055
     Dates: start: 19980101

REACTIONS (5)
  - COUGH [None]
  - DISORIENTATION [None]
  - DIZZINESS [None]
  - DRY MOUTH [None]
  - MUSCLE SPASMS [None]
